FAERS Safety Report 13189421 (Version 2)
Quarter: 2017Q1

REPORT INFORMATION
  Report Type: Spontaneous
  Country: FR (occurrence: FR)
  Receive Date: 20170206
  Receipt Date: 20170310
  Transmission Date: 20170428
  Serious: Yes (Hospitalization)
  Sender: FDA-Public Use
  Company Number: FR-LANNETT COMPANY, INC.-FR-2017LAN000446

PATIENT
  Age: 15 Year
  Sex: Male

DRUGS (4)
  1. CANNABIS [Concomitant]
     Active Substance: CANNABIS SATIVA SUBSP. INDICA TOP
     Indication: PRODUCT USED FOR UNKNOWN INDICATION
     Dosage: 1 CIGARETTE
     Route: 055
  2. CODEINE SULFATE. [Suspect]
     Active Substance: CODEINE SULFATE
     Indication: PRODUCT USED FOR UNKNOWN INDICATION
     Dosage: 300 ML, SINGLE [EUPHON SYRUP]
     Route: 048
  3. ALCOHOL. [Concomitant]
     Active Substance: ALCOHOL
     Indication: PRODUCT USED FOR UNKNOWN INDICATION
     Dosage: UNK
     Route: 048
  4. PROMETHAZINE HYDROCHLORIDE. [Suspect]
     Active Substance: PROMETHAZINE HYDROCHLORIDE
     Indication: PRODUCT USED FOR UNKNOWN INDICATION
     Dosage: 750 MG, SINGLE
     Route: 048

REACTIONS (10)
  - Agitation [Recovered/Resolved]
  - Hallucination, visual [Recovered/Resolved]
  - Confusional state [Recovered/Resolved]
  - Drug abuse [Recovered/Resolved]
  - Anticholinergic syndrome [Recovered/Resolved]
  - Somnolence [Recovered/Resolved]
  - Drug screen positive [Recovered/Resolved]
  - Toxicity to various agents [Recovered/Resolved]
  - Blood alcohol increased [Recovered/Resolved]
  - Delirium [Recovered/Resolved]
